FAERS Safety Report 15889308 (Version 1)
Quarter: 2019Q1

REPORT INFORMATION
  Report Type: Spontaneous
  Country: US (occurrence: US)
  Receive Date: 20190130
  Receipt Date: 20190130
  Transmission Date: 20190417
  Serious: Yes (Other)
  Sender: FDA-Public Use
  Company Number: US-ELI_LILLY_AND_COMPANY-US201901012055

PATIENT

DRUGS (1)
  1. TRULICITY [Suspect]
     Active Substance: DULAGLUTIDE
     Indication: PRODUCT USED FOR UNKNOWN INDICATION
     Dosage: UNK, UNKNOWN
     Route: 065
     Dates: start: 201712

REACTIONS (8)
  - Diarrhoea [Unknown]
  - Decreased appetite [Unknown]
  - Thrombosis [Unknown]
  - Pain in extremity [Unknown]
  - Weight increased [Unknown]
  - Alopecia [Unknown]
  - Abdominal distension [Unknown]
  - Limb discomfort [Unknown]
